FAERS Safety Report 15150561 (Version 1)
Quarter: 2018Q3

REPORT INFORMATION
  Report Type: Spontaneous
  Country: SK (occurrence: SK)
  Receive Date: 20180716
  Receipt Date: 20180716
  Transmission Date: 20181010
  Serious: Yes (Hospitalization, Congenital Anomaly)
  Sender: FDA-Public Use
  Company Number: PHHY2018SK045961

PATIENT
  Sex: Female
  Weight: 3.2 kg

DRUGS (1)
  1. AZITHROMYCIN ANHYDROUS. [Suspect]
     Active Substance: AZITHROMYCIN ANHYDROUS
     Indication: LARYNGITIS
     Route: 064

REACTIONS (3)
  - Live birth [Unknown]
  - Foetal exposure during pregnancy [Unknown]
  - Congenital cystic lung [Recovering/Resolving]
